FAERS Safety Report 15075419 (Version 2)
Quarter: 2023Q4

REPORT INFORMATION
  Report Type: Report from Study
  Country: US (occurrence: US)
  Receive Date: 20180627
  Receipt Date: 20231128
  Transmission Date: 20240110
  Serious: No
  Sender: FDA-Public Use
  Company Number: US-SAOL THERAPEUTICS-2018SAO00557

PATIENT
  Age: 62 Year
  Sex: Female

DRUGS (12)
  1. BACLOFEN [Suspect]
     Active Substance: BACLOFEN
     Dosage: 266.26 ?G, \DAY
     Route: 037
     Dates: start: 20150123, end: 20150126
  2. BACLOFEN [Suspect]
     Active Substance: BACLOFEN
     Dosage: 405.86 ?G, \DAY, MAX TOTAL DAILY DOSE
     Route: 037
     Dates: start: 20150123, end: 20150126
  3. BACLOFEN [Suspect]
     Active Substance: BACLOFEN
     Dosage: 319.74 ?G, \DAY
     Route: 037
     Dates: start: 20150126, end: 20150126
  4. BACLOFEN [Suspect]
     Active Substance: BACLOFEN
     Dosage: 442.44 ?G, \DAY, MAX TOTAL DAILY DOSE
     Route: 037
     Dates: start: 20150126
  5. FENTANYL [Suspect]
     Active Substance: FENTANYL\FENTANYL CITRATE
     Dosage: 199.7 MG, \DAY
     Route: 037
     Dates: start: 20150123, end: 20150126
  6. FENTANYL [Suspect]
     Active Substance: FENTANYL\FENTANYL CITRATE
     Dosage: 304.39 MG, \DAY, MAX TOTAL DAILY DOSE
     Route: 037
     Dates: start: 20150123, end: 20150126
  7. FENTANYL [Suspect]
     Active Substance: FENTANYL\FENTANYL CITRATE
     Dosage: 239.80 MG, \DAY
     Route: 037
     Dates: start: 20150126
  8. FENTANYL [Suspect]
     Active Substance: FENTANYL\FENTANYL CITRATE
     Dosage: 331.83 MG, \DAY
     Route: 037
     Dates: start: 20150126
  9. BUPIVACAINE [Suspect]
     Active Substance: BUPIVACAINE
     Dosage: 19.97 MG, \DAY
     Route: 037
     Dates: start: 20150123, end: 20150123
  10. BUPIVACAINE [Suspect]
     Active Substance: BUPIVACAINE
     Dosage: 30.439 MG, \DAY, MAX TOTAL DAILY DOSE
     Route: 037
     Dates: start: 20150126, end: 20150126
  11. BUPIVACAINE [Suspect]
     Active Substance: BUPIVACAINE
     Dosage: 23.980 MG, \DAY
     Route: 037
     Dates: start: 20150126
  12. BUPIVACAINE [Suspect]
     Active Substance: BUPIVACAINE
     Dosage: 33.183 MG, \DAY, MAX TOTAL DAILY DOSE
     Route: 037
     Dates: start: 20150126

REACTIONS (1)
  - Dizziness [Recovered/Resolved]

NARRATIVE: CASE EVENT DATE: 20150126
